FAERS Safety Report 22661017 (Version 1)
Quarter: 2023Q2

REPORT INFORMATION
  Report Type: Spontaneous
  Country: US (occurrence: US)
  Receive Date: 20230630
  Receipt Date: 20230630
  Transmission Date: 20230722
  Serious: No
  Sender: FDA-Public Use
  Company Number: US-009507513-2306USA012925

PATIENT
  Age: 72 Year
  Sex: Female

DRUGS (5)
  1. BELSOMRA [Suspect]
     Active Substance: SUVOREXANT
     Indication: Insomnia
     Dosage: 5 MILLIGRAMS, DAILY
     Route: 048
     Dates: start: 20230622, end: 20230626
  2. TRAMADOL [Concomitant]
     Active Substance: TRAMADOL
  3. TIZANIDINE [Concomitant]
     Active Substance: TIZANIDINE
  4. ADVIL [Concomitant]
     Active Substance: IBUPROFEN
  5. MONTELUKAST [Concomitant]
     Active Substance: MONTELUKAST SODIUM

REACTIONS (5)
  - Drug ineffective [Recovered/Resolved]
  - Somnolence [Recovered/Resolved]
  - Nightmare [Recovered/Resolved]
  - Musculoskeletal stiffness [Recovered/Resolved]
  - Panic reaction [Recovered/Resolved]

NARRATIVE: CASE EVENT DATE: 20230601
